FAERS Safety Report 6578023-6 (Version None)
Quarter: 2010Q1

REPORT INFORMATION
  Report Type: 
  Country: None (occurrence: None)
  Receive Date: 20100211
  Receipt Date: 20100104
  Transmission Date: 20100710
  Serious: Yes (Life-Threatening, Hospitalization, Other)
  Sender: FDA-Public Use
  Company Number: US-BRISTOL-MYERS SQUIBB COMPANY-14920268

PATIENT
  Age: 63 Year
  Sex: Female
  Weight: 76 kg

DRUGS (2)
  1. DASATINIB [Suspect]
     Indication: BREAST CANCER
     Dosage: TAKEN DASATINIB ORALLY FOR 5 DAYS.
     Route: 048
     Dates: start: 20090603, end: 20090607
  2. IXABEPILONE [Suspect]
     Indication: BREAST CANCER
     Dosage: RECEIVED 1 DOSE OF 74MG OF IXABEPILONE
     Route: 042
     Dates: start: 20090603, end: 20090603

REACTIONS (4)
  - CHEST PAIN [None]
  - INFECTION PARASITIC [None]
  - NEUTROPENIA [None]
  - URINARY TRACT INFECTION [None]
